FAERS Safety Report 17614048 (Version 4)
Quarter: 2020Q3

REPORT INFORMATION
  Report Type: Other
  Country: US (occurrence: US)
  Receive Date: 20200402
  Receipt Date: 20200820
  Transmission Date: 20201102
  Serious: Yes (Other)
  Sender: FDA-Public Use
  Company Number: US-INTERCEPT-PM2020000823

PATIENT
  Age: 75 Year
  Sex: Female

DRUGS (35)
  1. OCALIVA [Suspect]
     Active Substance: OBETICHOLIC ACID
     Dosage: 5 MG, QD
     Route: 048
  2. GABAPENTIN. [Concomitant]
     Active Substance: GABAPENTIN
  3. LEVEMIR [Concomitant]
     Active Substance: INSULIN DETEMIR
  4. PREDNISONE. [Concomitant]
     Active Substance: PREDNISONE
  5. RESTASIS [Concomitant]
     Active Substance: CYCLOSPORINE
  6. TRAMADOL HCL [Concomitant]
     Active Substance: TRAMADOL HYDROCHLORIDE
  7. HYDROCODONE/PARACETAMOL [Concomitant]
     Active Substance: ACETAMINOPHEN\HYDROCODONE BITARTRATE
  8. CETIRIZINE [Concomitant]
     Active Substance: CETIRIZINE HYDROCHLORIDE
  9. HYDRALAZINE [Concomitant]
     Active Substance: HYDRALAZINE HYDROCHLORIDE
  10. LUMIGAN [Concomitant]
     Active Substance: BIMATOPROST
  11. METHYLPRED [Concomitant]
     Active Substance: METHYLPREDNISOLONE
  12. ONDANSETRON [Concomitant]
     Active Substance: ONDANSETRON
  13. COMBIGAN [Concomitant]
     Active Substance: BRIMONIDINE TARTRATE\TIMOLOL MALEATE
  14. HUMALOG KWIK [Concomitant]
  15. METOPROLOL TARTRATE. [Concomitant]
     Active Substance: METOPROLOL TARTRATE
  16. OMEPRAZOLE. [Concomitant]
     Active Substance: OMEPRAZOLE
  17. ALPRAZOLAM. [Concomitant]
     Active Substance: ALPRAZOLAM
  18. URSODIOL. [Concomitant]
     Active Substance: URSODIOL
  19. AMLODIPINE W/OLMESARTAN [Concomitant]
     Active Substance: AMLODIPINE MALEATE\OLMESARTAN MEDOXOMIL
  20. DIAZEPAM. [Concomitant]
     Active Substance: DIAZEPAM
  21. ANUCORT?HC [Concomitant]
     Active Substance: HYDROCORTISONE ACETATE
  22. OCALIVA [Suspect]
     Active Substance: OBETICHOLIC ACID
     Indication: PRIMARY BILIARY CHOLANGITIS
     Dosage: 5 MG, QD
     Route: 048
     Dates: start: 20190606
  23. COLACE [Concomitant]
     Active Substance: DOCUSATE SODIUM
  24. PRIMIDONE. [Concomitant]
     Active Substance: PRIMIDONE
  25. DOCUSATE [Concomitant]
     Active Substance: DOCUSATE
  26. PROMETHAZINE [Concomitant]
     Active Substance: PROMETHAZINE HYDROCHLORIDE
  27. ATORVASTATIN [Concomitant]
     Active Substance: ATORVASTATIN
  28. FLUTICASONE. [Concomitant]
     Active Substance: FLUTICASONE
  29. HYDROCHLOROTH [Concomitant]
     Active Substance: HYDROCHLOROTHIAZIDE
  30. MOMETASONE [Concomitant]
     Active Substance: MOMETASONE
  31. LIDOCAINE/PRILOCAINE [Concomitant]
     Active Substance: LIDOCAINE\PRILOCAINE
  32. TIZANIDINE. [Concomitant]
     Active Substance: TIZANIDINE
  33. CYCLOBENZAPRIN [Concomitant]
     Active Substance: CYCLOBENZAPRINE
  34. TOPIRAMATE. [Concomitant]
     Active Substance: TOPIRAMATE
  35. NITROFURANTOIN. [Concomitant]
     Active Substance: NITROFURANTOIN

REACTIONS (3)
  - Breast cancer [Not Recovered/Not Resolved]
  - Hypersensitivity [Unknown]
  - Breast conserving surgery [Unknown]

NARRATIVE: CASE EVENT DATE: 202003
